FAERS Safety Report 8135974-9 (Version None)
Quarter: 2012Q1

REPORT INFORMATION
  Report Type: 
  Country: None (occurrence: None)
  Receive Date: 20120209
  Receipt Date: 20120206
  Transmission Date: 20120608
  Serious: Yes (Hospitalization)
  Sender: FDA-Public Use
  Company Number: 2011SP040947

PATIENT
  Age: 21 Year
  Sex: Female
  Weight: 75.7507 kg

DRUGS (4)
  1. NUVARING [Suspect]
     Indication: MENSTRUATION IRREGULAR
     Dates: start: 20090101, end: 20090901
  2. ALBUTEROL INHALER [Concomitant]
  3. IMITREX [Suspect]
     Indication: MIGRAINE
  4. COMPAZINE [Suspect]
     Indication: HEADACHE

REACTIONS (39)
  - NAUSEA [None]
  - OVARIAN CYST RUPTURED [None]
  - MUSCULOSKELETAL STIFFNESS [None]
  - DIZZINESS [None]
  - VULVOVAGINITIS TRICHOMONAL [None]
  - POISONING [None]
  - THROMBOPHLEBITIS SUPERFICIAL [None]
  - AGGRESSION [None]
  - DYSPAREUNIA [None]
  - VAGINAL HAEMORRHAGE [None]
  - ALCOHOL POISONING [None]
  - INTENTIONAL SELF-INJURY [None]
  - FOREIGN BODY [None]
  - MENSTRUATION IRREGULAR [None]
  - THROMBOSIS [None]
  - RESTLESS LEGS SYNDROME [None]
  - MUSCLE SPASMS [None]
  - SUICIDAL BEHAVIOUR [None]
  - PELVIC PAIN [None]
  - DYSPNOEA [None]
  - PALPITATIONS [None]
  - PELVIC INFLAMMATORY DISEASE [None]
  - MENOMETRORRHAGIA [None]
  - DRUG SCREEN POSITIVE [None]
  - ALCOHOL ABUSE [None]
  - VOMITING [None]
  - OVERDOSE [None]
  - HEADACHE [None]
  - EPIGASTRIC DISCOMFORT [None]
  - GASTRITIS [None]
  - CONTUSION [None]
  - LACERATION [None]
  - BIPOLAR DISORDER [None]
  - ABDOMINAL DISCOMFORT [None]
  - CHEST PAIN [None]
  - PANIC ATTACK [None]
  - DYSFUNCTIONAL UTERINE BLEEDING [None]
  - SMEAR VAGINAL ABNORMAL [None]
  - NERVOUSNESS [None]
